FAERS Safety Report 8896382 (Version 3)
Quarter: 2012Q4

REPORT INFORMATION
  Report Type: 
  Country: US (occurrence: None)
  Receive Date: 20121109
  Receipt Date: 20121128
  Transmission Date: 20130627
  Serious: Yes (Life-Threatening, Hospitalization, Disabling)
  Sender: FDA-Public Use
  Company Number: None

PATIENT
  Age: 38 Year
  Sex: Male
  Weight: 138.35 kg

DRUGS (1)
  1. CARDIOPLEGIA SOLUTION [Suspect]
     Dates: start: 20120625, end: 20120625

REACTIONS (3)
  - Peptostreptococcus infection [None]
  - Activities of daily living impaired [None]
  - Tooth extraction [None]
